FAERS Safety Report 7991360-3 (Version None)
Quarter: 2011Q4

REPORT INFORMATION
  Report Type: 
  Country: None (occurrence: None)
  Receive Date: 20111219
  Receipt Date: 20111212
  Transmission Date: 20120403
  Serious: Yes (Other)
  Sender: FDA-Public Use
  Company Number: US-BAXTER-2011BH039186

PATIENT
  Age: 30 Year
  Sex: Male

DRUGS (9)
  1. PROPOFOL [Suspect]
     Indication: INDUCTION OF ANAESTHESIA
     Route: 065
  2. MIDAZOLAM HYDROCHLORIDE [Suspect]
     Indication: INDUCTION OF ANAESTHESIA
     Route: 065
  3. FENTANYL CITRATE [Suspect]
     Indication: INDUCTION OF ANAESTHESIA
     Route: 065
  4. LIDOCAINE HCL [Suspect]
     Indication: INDUCTION OF ANAESTHESIA
     Route: 065
  5. SUCCINYLCHOLINE CHLORIDE [Suspect]
     Indication: INDUCTION OF ANAESTHESIA
     Route: 065
  6. SERTRALINE HYDROCHLORIDE [Concomitant]
     Indication: DEPRESSION
     Route: 065
  7. SEVOFLURANE [Suspect]
     Indication: GENERAL ANAESTHESIA
     Route: 055
  8. CYCLOBENZAPRINE [Concomitant]
     Indication: MUSCLE SPASMS
     Route: 065
  9. ACETAMINOPHEN AND HYDROCODONE BITARTRATE [Concomitant]
     Indication: FACIAL BONES FRACTURE
     Route: 065

REACTIONS (1)
  - STRESS CARDIOMYOPATHY [None]
